FAERS Safety Report 5201311-2 (Version None)
Quarter: 2007Q1

REPORT INFORMATION
  Report Type: 
  Country: None (occurrence: None)
  Receive Date: 20070104
  Receipt Date: 20061227
  Transmission Date: 20070707
  Serious: Yes (Other)
  Sender: FDA-Public Use
  Company Number: 163-21880-06121282

PATIENT
  Age: 78 Year
  Sex: Male
  Weight: 89.3586 kg

DRUGS (10)
  1. REVLIMID [Suspect]
     Indication: MYELODYSPLASTIC SYNDROME
     Dosage: 10 MG, 1 IN 1 D, ORAL
     Route: 048
     Dates: start: 20061222, end: 20061224
  2. FOLIC ACID [Concomitant]
  3. VITAMIN E [Concomitant]
  4. ASPIRIN [Concomitant]
  5. B12 (CYANOCOBALAMIN) [Concomitant]
  6. ATENOLOL [Concomitant]
  7. FOSINOPRIL SODIUM [Concomitant]
  8. PYRIDOXINE (PYRIDOXINE) [Concomitant]
  9. HYDROXYUREA [Concomitant]
  10. VIDAZA [Concomitant]

REACTIONS (2)
  - PRURITUS [None]
  - SWELLING FACE [None]
